FAERS Safety Report 8298799-X (Version None)
Quarter: 2012Q2

REPORT INFORMATION
  Report Type: 
  Country: None (occurrence: None)
  Receive Date: 20120419
  Receipt Date: 20120409
  Transmission Date: 20120825
  Serious: Yes (Hospitalization, Other)
  Sender: FDA-Public Use
  Company Number: US-ELI_LILLY_AND_COMPANY-US201204003297

PATIENT
  Sex: Male

DRUGS (6)
  1. CITALOPRAM [Concomitant]
     Dosage: 40 MG, UNK
  2. ASPIRIN [Concomitant]
     Dosage: 85 MG, UNK
  3. METOPROLOL TARTRATE [Concomitant]
     Dosage: 25 MG, UNK
  4. TRICOR [Concomitant]
     Dosage: 160 MG, UNK
  5. EFFIENT [Suspect]
     Indication: STENT PLACEMENT
     Dosage: 10 MG, UNKNOWN
  6. LISINOPRIL [Concomitant]
     Dosage: 40 MG, UNK

REACTIONS (2)
  - FALL [None]
  - SURGERY [None]
